FAERS Safety Report 8977660 (Version 1)
Quarter: 2012Q4

REPORT INFORMATION
  Report Type: 
  Country: AU (occurrence: AU)
  Receive Date: 20121220
  Receipt Date: 20121220
  Transmission Date: 20130627
  Serious: Yes (Hospitalization)
  Sender: FDA-Public Use
  Company Number: AU-GLAXOSMITHKLINE-B0853869A

PATIENT
  Age: 69 Year
  Sex: Female

DRUGS (2)
  1. TYVERB [Suspect]
     Indication: BREAST CANCER METASTATIC
     Dosage: 1000MG Unknown
     Route: 065
     Dates: start: 20120201
  2. XELODA [Concomitant]
     Dosage: 2000MG Unknown
     Route: 065

REACTIONS (2)
  - Syncope [Recovering/Resolving]
  - Head injury [Unknown]
